FAERS Safety Report 5122259-8 (Version None)
Quarter: 2006Q4

REPORT INFORMATION
  Report Type: 
  Country: None (occurrence: None)
  Receive Date: 20061003
  Receipt Date: 20060925
  Transmission Date: 20070319
  Serious: Yes (Hospitalization, Other)
  Sender: FDA-Public Use
  Company Number: 2006SP002853

PATIENT
  Age: 42 Year
  Sex: Male
  Weight: 86 kg

DRUGS (7)
  1. TEMOZOLOMIDE (S-P) [Suspect]
     Indication: METASTATIC MALIGNANT MELANOMA
     Dosage: QD;PO
     Route: 048
     Dates: start: 20060602, end: 20060712
  2. THALOMID [Suspect]
     Indication: METASTATIC MALIGNANT MELANOMA
     Dosage: 400 MG;QD;PO
     Route: 048
     Dates: start: 20060602, end: 20060712
  3. LOMUSTINE [Suspect]
     Indication: METASTATIC MALIGNANT MELANOMA
     Dosage: 60 MG;QD;PO
     Route: 048
     Dates: start: 20060602, end: 20060602
  4. DEXAMETHASONE TAB [Concomitant]
  5. DEPAKOTE [Concomitant]
  6. SENOKOT [Concomitant]
  7. LORAZEPAM [Concomitant]

REACTIONS (17)
  - ANOREXIA [None]
  - CONSTIPATION [None]
  - CONVULSION [None]
  - DECREASED APPETITE [None]
  - EPISTAXIS [None]
  - FACE OEDEMA [None]
  - FATIGUE [None]
  - INFLAMMATION [None]
  - LEUKOPENIA [None]
  - NEUTROPENIA [None]
  - OEDEMA PERIPHERAL [None]
  - OPPORTUNISTIC INFECTION [None]
  - PNEUMONIA [None]
  - PULMONARY EMBOLISM [None]
  - PULMONARY INFARCTION [None]
  - PYREXIA [None]
  - THROMBOCYTOPENIA [None]
